FAERS Safety Report 8320578-5 (Version None)
Quarter: 2012Q2

REPORT INFORMATION
  Report Type: 
  Country: None (occurrence: None)
  Receive Date: 20120430
  Receipt Date: 20120425
  Transmission Date: 20120825
  Serious: Yes (Death, Life-Threatening, Hospitalization)
  Sender: FDA-Public Use
  Company Number: JP-PFIZER INC-2012101654

PATIENT
  Age: 68 Year
  Sex: Male
  Weight: 36 kg

DRUGS (8)
  1. TEMSIROLIMUS [Suspect]
     Dosage: 25 MG, UNK
     Route: 041
     Dates: start: 20110707, end: 20110707
  2. TEMSIROLIMUS [Suspect]
     Dosage: 25 MG, UNK
     Route: 041
     Dates: start: 20110728, end: 20110728
  3. LOXOPROFEN SODIUM [Concomitant]
     Indication: RENAL CELL CARCINOMA
     Dosage: 60 MG, 2X/DAY
     Route: 048
     Dates: start: 20110518
  4. TEMSIROLIMUS [Suspect]
     Dosage: 25 MG, WEEKLY
     Route: 041
     Dates: start: 20110602, end: 20110609
  5. CALCIUM POLYSTYRENE SULFONATE [Concomitant]
     Indication: RENAL CELL CARCINOMA
     Dosage: 25 G, 2X/DAY
     Route: 048
     Dates: end: 20110817
  6. CHLOR-TRIMETON [Concomitant]
     Indication: PROPHYLAXIS
     Dosage: 10 MG/DAY
     Route: 042
  7. TEMSIROLIMUS [Suspect]
     Indication: RENAL CELL CARCINOMA
     Dosage: 25 MG, UNK
     Route: 041
     Dates: start: 20110518, end: 20110518
  8. REBAMIPIDE [Concomitant]
     Indication: PROPHYLAXIS
     Dosage: 100 MG, 2X/DAY
     Route: 048
     Dates: end: 20110817

REACTIONS (2)
  - PNEUMONIA BACTERIAL [None]
  - INTERSTITIAL LUNG DISEASE [None]
